FAERS Safety Report 21398259 (Version 2)
Quarter: 2022Q4

REPORT INFORMATION
  Report Type: Spontaneous
  Country: US (occurrence: US)
  Receive Date: 20220930
  Receipt Date: 20221007
  Transmission Date: 20230112
  Serious: No
  Sender: FDA-Public Use
  Company Number: US-BIOGEN-2022BI01158703

PATIENT
  Sex: Male

DRUGS (1)
  1. PLEGRIDY [Suspect]
     Active Substance: PEGINTERFERON BETA-1A
     Indication: Multiple sclerosis
     Route: 050
     Dates: start: 20160926

REACTIONS (2)
  - Drug delivery system malfunction [Unknown]
  - Injection site erythema [Recovered/Resolved]
